FAERS Safety Report 5283015-3 (Version None)
Quarter: 2007Q2

REPORT INFORMATION
  Report Type: 
  Country: None (occurrence: None)
  Receive Date: 20070402
  Receipt Date: 20070321
  Transmission Date: 20071010
  Serious: Yes (Hospitalization)
  Sender: FDA-Public Use
  Company Number: US-AMGEN-US216037

PATIENT
  Sex: Male

DRUGS (13)
  1. AMG 706 [Suspect]
     Indication: METASTATIC NEOPLASM
     Route: 048
     Dates: start: 20070307, end: 20070320
  2. PANITUMUMAB [Suspect]
     Indication: METASTATIC NEOPLASM
     Route: 042
     Dates: start: 20070307, end: 20070307
  3. GEMCITABINE [Suspect]
     Route: 042
     Dates: start: 20070307, end: 20070314
  4. CISPLATIN [Suspect]
     Route: 042
     Dates: start: 20070307, end: 20070307
  5. ATENOLOL [Concomitant]
     Route: 048
  6. ASPIRIN [Concomitant]
     Route: 048
  7. LISINOPRIL [Concomitant]
     Route: 048
  8. LIPITOR [Concomitant]
     Route: 048
  9. ZOFRAN [Concomitant]
     Route: 048
  10. COMPAZINE [Concomitant]
     Route: 048
  11. TYLENOL [Concomitant]
     Route: 048
  12. LEXAPRO [Concomitant]
     Route: 048
  13. DOXYCYCLINE [Concomitant]
     Route: 048

REACTIONS (2)
  - DEHYDRATION [None]
  - HYPONATRAEMIA [None]
